FAERS Safety Report 16197527 (Version 2)
Quarter: 2019Q2

REPORT INFORMATION
  Report Type: Spontaneous
  Country: US (occurrence: US)
  Receive Date: 20190415
  Receipt Date: 20190620
  Transmission Date: 20190711
  Serious: No
  Sender: FDA-Public Use
  Company Number: US-TOLMAR, INC.-TOLG20192218

PATIENT
  Age: 71 Year
  Sex: Female

DRUGS (1)
  1. AZELAIC ACID. [Suspect]
     Active Substance: AZELAIC ACID
     Indication: ROSACEA
     Dosage: UNKNOWN
     Route: 061
     Dates: start: 20190227

REACTIONS (2)
  - Drug ineffective [Not Recovered/Not Resolved]
  - Product substitution issue [None]

NARRATIVE: CASE EVENT DATE: 20190227
